FAERS Safety Report 9009813 (Version 5)
Quarter: 2014Q1

REPORT INFORMATION
  Report Type: Spontaneous
  Country: US (occurrence: US)
  Receive Date: 20130110
  Receipt Date: 20140327
  Transmission Date: 20141002
  Serious: Yes (Hospitalization, Other)
  Sender: FDA-Public Use
  Company Number: US-009507513-1301USA002323

PATIENT
  Sex: Female
  Weight: 79.82 kg

DRUGS (6)
  1. FOSAMAX [Suspect]
     Indication: OSTEOPOROSIS PROPHYLAXIS
     Dosage: 5 MG, UNK
     Route: 048
     Dates: end: 200807
  2. FOSAMAX [Suspect]
     Dosage: 10 MG DAILY
     Route: 048
     Dates: end: 200807
  3. ALENDRONATE SODIUM [Suspect]
     Indication: OSTEOPOROSIS PROPHYLAXIS
     Dosage: 20 MG, UNK
     Dates: start: 20080731, end: 200909
  4. ALENDRONATE SODIUM [Suspect]
     Dosage: 10MG, UNK
  5. BONIVA [Suspect]
     Indication: OSTEOPOROSIS PROPHYLAXIS
     Dosage: 150 MG, MONTHLY
     Dates: start: 20090914, end: 201106
  6. LOPRESSOR [Concomitant]
     Indication: HYPERTENSION
     Dosage: 25 MG, BID

REACTIONS (37)
  - Femur fracture [Recovered/Resolved]
  - Intramedullary rod insertion [Unknown]
  - Anaemia postoperative [Unknown]
  - Breast cancer [Unknown]
  - Basal cell carcinoma [Unknown]
  - Low turnover osteopathy [Unknown]
  - Dementia Alzheimer^s type [Not Recovered/Not Resolved]
  - Tooth extraction [Unknown]
  - Hypercholesterolaemia [Unknown]
  - Incorrect dose administered [Unknown]
  - Fatigue [Unknown]
  - Osteopenia [Unknown]
  - Vascular calcification [Unknown]
  - Chondrocalcinosis [Unknown]
  - Arthritis [Unknown]
  - Spinal osteoarthritis [Unknown]
  - Scoliosis [Unknown]
  - Hyponatraemia [Recovered/Resolved]
  - Hyperglycaemia [Unknown]
  - Tachycardia [Unknown]
  - Delirium [Unknown]
  - Cardiomegaly [Unknown]
  - Chest pain [Unknown]
  - Ankle fracture [Unknown]
  - Body height decreased [Unknown]
  - Intervertebral disc degeneration [Unknown]
  - Osteoarthritis [Unknown]
  - Ataxia [Unknown]
  - Urinary tract infection [Unknown]
  - Skin ulcer [Unknown]
  - Anaemia [Unknown]
  - Hernia [Unknown]
  - Hernia repair [Unknown]
  - Pyrexia [Unknown]
  - Oedema peripheral [Recovered/Resolved]
  - Back pain [Unknown]
  - Gastrooesophageal reflux disease [Unknown]
